FAERS Safety Report 24944768 (Version 1)
Quarter: 2025Q1

REPORT INFORMATION
  Report Type: Report from Study
  Country: NL (occurrence: NL)
  Receive Date: 20250208
  Receipt Date: 20250208
  Transmission Date: 20250409
  Serious: Yes (Hospitalization, Other)
  Sender: AUROBINDO
  Company Number: NL-AUROBINDO-AUR-APL-2025-006151

PATIENT
  Age: 34 Year
  Sex: Female

DRUGS (1)
  1. ACETAMINOPHEN [Suspect]
     Active Substance: ACETAMINOPHEN
     Indication: Product used for unknown indication
     Route: 065

REACTIONS (4)
  - Stomatitis [Unknown]
  - Conjunctivitis [Unknown]
  - Pyrexia [Unknown]
  - Vulvitis [Unknown]
